FAERS Safety Report 8078379-1 (Version None)
Quarter: 2012Q1

REPORT INFORMATION
  Report Type: 
  Country: None (occurrence: None)
  Receive Date: 20120123
  Receipt Date: 20120112
  Transmission Date: 20120608
  Serious: Yes (Death)
  Sender: FDA-Public Use
  Company Number: 2012IN000049

PATIENT
  Age: 68 Year
  Sex: Male

DRUGS (7)
  1. JAKAFI [Suspect]
     Indication: MYELOFIBROSIS
     Dosage: 5 MG, BID, ORAL
     Route: 048
     Dates: start: 20111208
  2. FLOMAX [Concomitant]
  3. HYDROCORTISONE (HYDROCORTISONE HYDROGEN SUCCINATE) [Concomitant]
  4. PRILOSEC [Concomitant]
  5. COLACE (DOCUSATE SODIUM) [Concomitant]
  6. EFFEXOR [Concomitant]
  7. ACYCLOVIR [Concomitant]

REACTIONS (1)
  - DEATH [None]
